FAERS Safety Report 8879655 (Version 31)
Quarter: 2015Q4

REPORT INFORMATION
  Report Type: Spontaneous
  Country: US (occurrence: US)
  Receive Date: 20121031
  Receipt Date: 20151124
  Transmission Date: 20160305
  Serious: Yes (Hospitalization, Other)
  Sender: FDA-Public Use
  Company Number: US-GLAXOSMITHKLINE-A0999341A

PATIENT
  Age: 37 Year
  Sex: Female

DRUGS (20)
  1. SILDENAFIL CITRATE. [Concomitant]
     Active Substance: SILDENAFIL CITRATE
     Dosage: UNK
  2. FLOLAN [Suspect]
     Active Substance: EPOPROSTENOL SODIUM
     Dosage: UNK
     Dates: start: 20061019
  3. FLOLAN [Suspect]
     Active Substance: EPOPROSTENOL SODIUM
     Dosage: 9 NG/KG/MIN CONTINUOUSLY
     Route: 042
  4. FLOLAN [Suspect]
     Active Substance: EPOPROSTENOL SODIUM
     Dosage: 9 DF, UNK
  5. FLOLAN [Suspect]
     Active Substance: EPOPROSTENOL SODIUM
     Dosage: 9NG/KG/MIN; CO
     Route: 042
  6. FLOLAN [Suspect]
     Active Substance: EPOPROSTENOL SODIUM
     Indication: PULMONARY HYPERTENSION
     Dosage: UNK
     Dates: start: 20061019
  7. FLOLAN [Suspect]
     Active Substance: EPOPROSTENOL SODIUM
     Dosage: UNK
     Dates: start: 20061019
  8. FLOLAN [Suspect]
     Active Substance: EPOPROSTENOL SODIUM
     Dosage: 9 DF, CO
     Route: 042
  9. FLOLAN [Suspect]
     Active Substance: EPOPROSTENOL SODIUM
     Dosage: UNK
     Dates: start: 20061019
  10. FLOLAN [Suspect]
     Active Substance: EPOPROSTENOL SODIUM
     Dosage: UNK
     Dates: start: 20061019
  11. FLOLAN [Suspect]
     Active Substance: EPOPROSTENOL SODIUM
     Dosage: UNK
     Dates: start: 20061019
  12. REVATIO [Concomitant]
     Active Substance: SILDENAFIL CITRATE
  13. FLOLAN [Suspect]
     Active Substance: EPOPROSTENOL SODIUM
     Indication: COR PULMONALE CHRONIC
     Dosage: 14 NG/KG/MIN, 1.5 MG VIAL STRENGTH, 30,000 NG/ML CONCENTRATION, PUMP RATE 42 ML/DAY12 NG/KG/MIN[...]
     Route: 042
     Dates: start: 20061019
  14. FLOLAN [Suspect]
     Active Substance: EPOPROSTENOL SODIUM
     Dosage: UNK
     Dates: start: 20061019
  15. FLOLAN [Suspect]
     Active Substance: EPOPROSTENOL SODIUM
     Dosage: UNK
     Dates: start: 20061019
  16. FLOLAN [Suspect]
     Active Substance: EPOPROSTENOL SODIUM
     Dosage: UNK
     Dates: start: 20061019
  17. FLOLAN [Suspect]
     Active Substance: EPOPROSTENOL SODIUM
     Dosage: UNK
     Dates: start: 20061019
  18. FLOLAN [Suspect]
     Active Substance: EPOPROSTENOL SODIUM
     Dosage: 9 NG/KG/MIN (CONCENTRATION 15,000 NG/ML, PUMP RATE 54 ML/DAY, VIAL STRENGTH 1.5 MG), CO
     Route: 042
  19. FLOLAN [Suspect]
     Active Substance: EPOPROSTENOL SODIUM
     Dosage: 9 NG/KG/MIN, CONTINUOUS
     Route: 042
  20. FLOLAN [Suspect]
     Active Substance: EPOPROSTENOL SODIUM
     Dosage: 54 NG/KG/MIN; CONCENTRATION: 15,000 NG/ML; PUMP RATE: 54ML/DAY; VIAL STRENGTH: 1.5MG
     Route: 042
     Dates: start: 20100625

REACTIONS (19)
  - Bronchitis [Recovered/Resolved]
  - Infection [Unknown]
  - Osteomyelitis [Unknown]
  - Catheter site erythema [Unknown]
  - Vomiting [Unknown]
  - Catheter site pruritus [Recovered/Resolved]
  - Catheter site infection [Recovered/Resolved]
  - Pyrexia [Recovered/Resolved]
  - Medical device complication [Unknown]
  - Hospitalisation [Not Recovered/Not Resolved]
  - Ill-defined disorder [Recovering/Resolving]
  - Catheter site discharge [Recovered/Resolved]
  - Influenza [Unknown]
  - Lung disorder [Unknown]
  - Diarrhoea [Unknown]
  - Device related infection [Recovered/Resolved]
  - Catheter site haemorrhage [Not Recovered/Not Resolved]
  - Hypotension [Unknown]
  - Device issue [Unknown]

NARRATIVE: CASE EVENT DATE: 20121023
